FAERS Safety Report 10423295 (Version 1)
Quarter: 2014Q3

REPORT INFORMATION
  Report Type: Spontaneous
  Country: GB (occurrence: GB)
  Receive Date: 20140902
  Receipt Date: 20140902
  Transmission Date: 20150326
  Serious: Yes (Other)
  Sender: FDA-Public Use
  Company Number: 2014SP004895

PATIENT
  Age: 67 Year
  Sex: Male

DRUGS (2)
  1. TOBRAMYCIN [Suspect]
     Active Substance: TOBRAMYCIN
     Indication: MYCOBACTERIAL INFECTION
     Route: 041
     Dates: start: 20140515
  2. LINEZOLID. [Suspect]
     Active Substance: LINEZOLID
     Indication: MYCOBACTERIAL INFECTION
     Route: 048
     Dates: start: 20140524

REACTIONS (2)
  - Neuropathy peripheral [Unknown]
  - Hypocalcaemia [Recovered/Resolved with Sequelae]

NARRATIVE: CASE EVENT DATE: 20140619
